FAERS Safety Report 19140751 (Version 2)
Quarter: 2022Q1

REPORT INFORMATION
  Report Type: Spontaneous
  Country: KZ (occurrence: KZ)
  Receive Date: 20210415
  Receipt Date: 20220224
  Transmission Date: 20220423
  Serious: Yes (Life-Threatening, Hospitalization, Other)
  Sender: FDA-Public Use
  Company Number: KZ-MLMSERVICE-20210331-2813425-1

PATIENT
  Age: 8 Year
  Weight: 18 kg

DRUGS (2)
  1. METHOTREXATE SODIUM [Suspect]
     Active Substance: METHOTREXATE SODIUM
     Indication: Acute lymphocytic leukaemia
     Dosage: 5 G/M2
     Dates: start: 202007
  2. LEUCOVORIN [Concomitant]
     Active Substance: LEUCOVORIN
     Dosage: 75 MG/M2

REACTIONS (3)
  - Toxicity to various agents [Recovered/Resolved]
  - Drug clearance decreased [Recovered/Resolved]
  - Acute kidney injury [Recovered/Resolved]

NARRATIVE: CASE EVENT DATE: 20200701
